FAERS Safety Report 5858064-4 (Version None)
Quarter: 2008Q3

REPORT INFORMATION
  Report Type: 
  Country: None (occurrence: None)
  Receive Date: 20080826
  Receipt Date: 20080815
  Transmission Date: 20090109
  Serious: Yes (Hospitalization)
  Sender: FDA-Public Use
  Company Number: US-MERCK-0808USA02777

PATIENT
  Sex: Female

DRUGS (1)
  1. HYDROCORTISONE 10MG TAB [Suspect]
     Indication: ADDISON'S DISEASE
     Route: 048

REACTIONS (2)
  - KIDNEY INFECTION [None]
  - SEPSIS [None]
